FAERS Safety Report 9745527 (Version 1)
Quarter: 2013Q4

REPORT INFORMATION
  Report Type: Spontaneous
  Country: US (occurrence: US)
  Receive Date: 20131211
  Receipt Date: 20131211
  Transmission Date: 20140711
  Serious: No
  Sender: FDA-Public Use
  Company Number: US-BIOGENIDEC-2013BI093055

PATIENT
  Age: 66 Year
  Sex: Female

DRUGS (5)
  1. TECFIDERA [Suspect]
     Indication: MULTIPLE SCLEROSIS
     Route: 048
     Dates: start: 201305
  2. LIPITOR [Concomitant]
  3. LOSARTAN [Concomitant]
  4. PROTONIX [Concomitant]
  5. NITROFURANTOIN [Concomitant]

REACTIONS (3)
  - Constipation [Unknown]
  - Nausea [Unknown]
  - Vomiting [Unknown]
